FAERS Safety Report 5060897-1 (Version None)
Quarter: 2006Q3

REPORT INFORMATION
  Report Type: 
  Country: None (occurrence: None)
  Receive Date: 20060719
  Receipt Date: 20060719
  Transmission Date: 20061208
  Serious: Yes (Other)
  Sender: FDA-Public Use
  Company Number: None

PATIENT
  Age: 69 Year
  Sex: Female
  Weight: 77.1115 kg

DRUGS (1)
  1. ZICAM COLD REMEDY SWABS [Suspect]
     Dosage: SWAB - NASAL 4 HR REP
     Route: 045

REACTIONS (2)
  - AGEUSIA [None]
  - ANOSMIA [None]
